FAERS Safety Report 21720558 (Version 1)
Quarter: 2022Q4

REPORT INFORMATION
  Report Type: Spontaneous
  Country: US (occurrence: None)
  Receive Date: 20221212
  Receipt Date: 20221212
  Transmission Date: 20230113
  Serious: No
  Sender: FDA-Public Use
  Company Number: None

PATIENT
  Age: 46 Year
  Sex: Female

DRUGS (1)
  1. VARENICLINE [Suspect]
     Active Substance: VARENICLINE
     Indication: Ex-tobacco user
     Dates: start: 20160920, end: 20161120

REACTIONS (7)
  - Depression [None]
  - Self-medication [None]
  - Asthenia [None]
  - Poor quality sleep [None]
  - Back disorder [None]
  - Impaired work ability [None]
  - Suicidal ideation [None]

NARRATIVE: CASE EVENT DATE: 20161122
